FAERS Safety Report 4967201-5 (Version None)
Quarter: 2006Q2

REPORT INFORMATION
  Report Type: 
  Country: None (occurrence: None)
  Receive Date: 20060403
  Receipt Date: 20060320
  Transmission Date: 20061013
  Serious: Yes (Hospitalization)
  Sender: FDA-Public Use
  Company Number: 2006038164

PATIENT
  Age: 70 Year
  Sex: Female

DRUGS (10)
  1. SUTENT [Suspect]
     Indication: METASTATIC RENAL CELL CARCINOMA
     Dosage: 50 MG (50 MG, 1 IN 1D), ORAL
     Route: 048
     Dates: start: 20060207
  2. HYDROCHLOROTHIAZIDE [Concomitant]
  3. PREMARIN [Concomitant]
  4. HYDROCODONE BITARTRATE [Concomitant]
  5. PAROXETINE HCL [Concomitant]
  6. AREDIA [Concomitant]
  7. ARANESP [Concomitant]
  8. NORVASC [Concomitant]
  9. TYLENOL PM (DIPHENHYDRAMINE, PARACETAMAL) [Concomitant]
  10. TYLENOL [Concomitant]

REACTIONS (1)
  - CEREBELLAR INFARCTION [None]
